FAERS Safety Report 14382195 (Version 2)
Quarter: 2018Q3

REPORT INFORMATION
  Report Type: Spontaneous
  Country: US (occurrence: US)
  Receive Date: 20180112
  Receipt Date: 20180717
  Transmission Date: 20181010
  Serious: Yes (Hospitalization)
  Sender: FDA-Public Use
  Company Number: US-DSJP-DSU-2017-141734

PATIENT

DRUGS (1)
  1. BENICAR [Suspect]
     Active Substance: OLMESARTAN MEDOXOMIL
     Indication: HYPERTENSION
     Dosage: 40 MG, UNK
     Route: 065
     Dates: start: 20060216, end: 20150818

REACTIONS (8)
  - Dizziness [Unknown]
  - Acute kidney injury [Recovering/Resolving]
  - Enteritis [Recovering/Resolving]
  - Diverticulum [Unknown]
  - Diverticulitis [Recovering/Resolving]
  - Gastritis haemorrhagic [Recovering/Resolving]
  - Sprue-like enteropathy [Recovering/Resolving]
  - Polyp [Recovered/Resolved]

NARRATIVE: CASE EVENT DATE: 20111012
